FAERS Safety Report 7884543-4 (Version None)
Quarter: 2011Q4

REPORT INFORMATION
  Report Type: 
  Country: None (occurrence: None)
  Receive Date: 20111102
  Receipt Date: 20111028
  Transmission Date: 20120403
  Serious: Yes (Other)
  Sender: FDA-Public Use
  Company Number: US-PFIZER INC-2011264986

PATIENT
  Sex: Male
  Weight: 69.4 kg

DRUGS (1)
  1. SOMATROPIN [Suspect]
     Dosage: 3.2 MG, 1X/DAY
     Route: 058
     Dates: start: 20010727

REACTIONS (1)
  - OSTEONECROSIS [None]
